FAERS Safety Report 7987575-0 (Version None)
Quarter: 2011Q4

REPORT INFORMATION
  Report Type: 
  Country: None (occurrence: None)
  Receive Date: 20111216
  Receipt Date: 20110414
  Transmission Date: 20120403
  Serious: No
  Sender: FDA-Public Use
  Company Number: US-BRISTOL-MYERS SQUIBB COMPANY-15678261

PATIENT
  Sex: Female

DRUGS (3)
  1. ABILIFY [Suspect]
     Indication: ANGER
  2. ABILIFY [Suspect]
     Indication: NEGATIVISM
  3. ABILIFY [Suspect]
     Indication: POST-TRAUMATIC STRESS DISORDER

REACTIONS (1)
  - WEIGHT INCREASED [None]
